FAERS Safety Report 18439006 (Version 1)
Quarter: 2020Q4

REPORT INFORMATION
  Report Type: Spontaneous
  Country: US (occurrence: US)
  Receive Date: 20201028
  Receipt Date: 20201028
  Transmission Date: 20210114
  Serious: Yes (Other)
  Sender: FDA-Public Use
  Company Number: US-ANIPHARMA-2020-US-020863

PATIENT
  Age: 71 Year
  Sex: Female

DRUGS (1)
  1. CLOPIDOGREL BISULFATE (NON-SPECIFIC) [Suspect]
     Active Substance: CLOPIDOGREL BISULFATE
     Indication: PRODUCT USED FOR UNKNOWN INDICATION

REACTIONS (1)
  - Acute febrile neutrophilic dermatosis [Unknown]
